FAERS Safety Report 20753031 (Version 1)
Quarter: 2022Q2

REPORT INFORMATION
  Report Type: Spontaneous
  Country: US (occurrence: None)
  Receive Date: 20220426
  Receipt Date: 20220426
  Transmission Date: 20220721
  Serious: No
  Sender: FDA-Public Use
  Company Number: US-ROCHE-2986486

PATIENT
  Sex: Male

DRUGS (9)
  1. ESBRIET [Suspect]
     Active Substance: PIRFENIDONE
     Indication: Idiopathic pulmonary fibrosis
     Dosage: 1 TABLET BY MOUTH 3 TIMES DAILY
     Route: 048
     Dates: start: 20211028
  2. ADVIL [Concomitant]
     Active Substance: IBUPROFEN
  3. ATORVASTATIN [Concomitant]
     Active Substance: ATORVASTATIN
  4. CLOPIDOGREL [Concomitant]
     Active Substance: CLOPIDOGREL BISULFATE
  5. LISINOPRIL [Concomitant]
     Active Substance: LISINOPRIL
  6. NAPROXEN [Concomitant]
     Active Substance: NAPROXEN
  7. VITAMIN B12 [Concomitant]
     Active Substance: CYANOCOBALAMIN
     Dosage: 1000 MCG
  8. VITAMIN C [Concomitant]
     Active Substance: ASCORBIC ACID
     Dosage: 5000 UNIT
  9. ZINC [Concomitant]
     Active Substance: ZINC

REACTIONS (3)
  - Obstruction [Unknown]
  - Catheterisation cardiac [Unknown]
  - Blood pressure increased [Unknown]
